FAERS Safety Report 5370854-3 (Version None)
Quarter: 2007Q2

REPORT INFORMATION
  Report Type: 
  Country: None (occurrence: None)
  Receive Date: 20070626
  Receipt Date: 20060919
  Transmission Date: 20071010
  Serious: No
  Sender: FDA-Public Use
  Company Number: US-BAUSCH-2006BL005611

PATIENT
  Age: 54 Year
  Sex: Male

DRUGS (8)
  1. ALBUTEROL SULFATE [Suspect]
     Route: 049
  2. ALBUTEROL SULFATE [Suspect]
     Indication: EMPHYSEMA
     Route: 049
  3. COMBIVENT /GFR/ [Suspect]
     Route: 049
  4. COMBIVENT /GFR/ [Suspect]
     Indication: EMPHYSEMA
     Route: 049
  5. ADVAIR DISKUS 100/50 [Suspect]
     Route: 049
  6. ADVAIR DISKUS 100/50 [Suspect]
     Indication: EMPHYSEMA
     Route: 049
  7. ATROVENT [Suspect]
     Route: 049
  8. ATROVENT [Suspect]
     Indication: EMPHYSEMA
     Route: 049

REACTIONS (1)
  - DRUG INEFFECTIVE [None]
